FAERS Safety Report 4356082-9 (Version None)
Quarter: 2004Q2

REPORT INFORMATION
  Report Type: 
  Country: None (occurrence: None)
  Receive Date: 20040507
  Receipt Date: 20040507
  Transmission Date: 20050107
  Serious: Yes (Hospitalization)
  Sender: FDA-Public Use
  Company Number: None

PATIENT
  Age: 70 Year
  Sex: Male
  Weight: 94.8 kg

DRUGS (7)
  1. RANITIDINE [Suspect]
  2. DIVALPROEX SODIUM [Suspect]
  3. TIMOLOL-XE [Concomitant]
  4. OLANZAPINE [Concomitant]
  5. FELODIPINE [Concomitant]
  6. POTASSIUM CHLORIDE [Concomitant]
  7. MAXZIDE [Suspect]

REACTIONS (1)
  - PANCREATITIS [None]
